FAERS Safety Report 14660812 (Version 1)
Quarter: 2018Q1

REPORT INFORMATION
  Report Type: Other
  Country: CA (occurrence: CA)
  Receive Date: 20180320
  Receipt Date: 20180320
  Transmission Date: 20180509
  Serious: Yes (Other)
  Sender: FDA-Public Use
  Company Number: CA-SILVERGATE PHARMACEUTICALS, INC.-2018SIL00008

PATIENT
  Age: 67 Year
  Sex: Male

DRUGS (18)
  1. NEULASTA [Suspect]
     Active Substance: PEGFILGRASTIM
  2. OXAZEPAM. [Concomitant]
     Active Substance: OXAZEPAM
  3. PROCYTOX [Suspect]
     Active Substance: CYCLOPHOSPHAMIDE
  4. PROCHLORPERAZINE. [Concomitant]
     Active Substance: PROCHLORPERAZINE
  5. FLUTICASONE. [Concomitant]
     Active Substance: FLUTICASONE
  6. HYDROCORTISONE ACETATE. [Concomitant]
     Active Substance: HYDROCORTISONE ACETATE
  7. ACETAMINOPHEN. [Concomitant]
     Active Substance: ACETAMINOPHEN
  8. HYDROCHLOROTHIAZIDE. [Suspect]
     Active Substance: HYDROCHLOROTHIAZIDE
  9. PREDNISONE. [Suspect]
     Active Substance: PREDNISONE
  10. CHOLECALCIFEROL [Concomitant]
     Active Substance: CHOLECALCIFEROL
  11. SERTRALINE [Concomitant]
     Active Substance: SERTRALINE HYDROCHLORIDE
  12. ENALAPRIL [Suspect]
     Active Substance: ENALAPRIL
  13. FLUDARABINE PHOSPHATE. [Suspect]
     Active Substance: FLUDARABINE PHOSPHATE
  14. BENDEKA [Suspect]
     Active Substance: BENDAMUSTINE HYDROCHLORIDE
  15. BLEOMYCIN [Suspect]
     Active Substance: BLEOMYCIN SULFATE
  16. RITUXAN [Suspect]
     Active Substance: RITUXIMAB
  17. VINCRISTINE SULPHATE [Suspect]
     Active Substance: VINCRISTINE SULFATE
  18. XANTOFYL PALMITATE [Concomitant]
     Active Substance: XANTOFYL PALMITATE

REACTIONS (3)
  - Febrile neutropenia [Unknown]
  - Blood pressure decreased [Unknown]
  - Drug ineffective [Unknown]
